FAERS Safety Report 16315156 (Version 1)
Quarter: 2019Q2

REPORT INFORMATION
  Report Type: Spontaneous
  Country: US (occurrence: US)
  Receive Date: 20190409
  Receipt Date: 20190409
  Transmission Date: 20190711
  Serious: No
  Sender: FDA-Public Use
  Company Number: None

PATIENT
  Age: 61 Year
  Sex: Female
  Weight: 81.19 kg

DRUGS (12)
  1. METOPROLOL TARTRATE. [Concomitant]
     Active Substance: METOPROLOL TARTRATE
  2. TRULICITY [Concomitant]
     Active Substance: DULAGLUTIDE
  3. NOVOLOG [Suspect]
     Active Substance: INSULIN ASPART
     Indication: DIABETES MELLITUS
     Dosage: 10 UNITS AT MEALS; TWICE; INJECTION?
     Dates: start: 201812, end: 201903
  4. METFORMIN [Concomitant]
     Active Substance: METFORMIN HYDROCHLORIDE
  5. FARXIGA [Concomitant]
     Active Substance: DAPAGLIFLOZIN PROPANEDIOL
  6. VITAMIN D [Concomitant]
     Active Substance: VITAMIN D NOS
  7. LOSARTAN. [Concomitant]
     Active Substance: LOSARTAN
  8. AMOLDYPINE [Concomitant]
  9. MULTIVITAMIN [Concomitant]
     Active Substance: VITAMINS
  10. PIOGLITZON [Concomitant]
  11. COLLAGEN [Concomitant]
     Active Substance: COLLAGEN
  12. ROSUVASTATIN. [Concomitant]
     Active Substance: ROSUVASTATIN

REACTIONS (3)
  - Product prescribing error [None]
  - Product appearance confusion [None]
  - Product dispensing error [None]

NARRATIVE: CASE EVENT DATE: 20181203
